FAERS Safety Report 11633419 (Version 2)
Quarter: 2016Q1

REPORT INFORMATION
  Report Type: Report from Study
  Country: IT (occurrence: IT)
  Receive Date: 20151015
  Receipt Date: 20160321
  Transmission Date: 20160525
  Serious: Yes (Death, Other)
  Sender: FDA-Public Use
  Company Number: IT-PFIZER INC-2015339766

PATIENT
  Age: 47 Year
  Sex: Female

DRUGS (2)
  1. SOLU-MEDROL [Suspect]
     Active Substance: METHYLPREDNISOLONE SODIUM SUCCINATE
     Dosage: 7.5MG/KG FOR THE LAST EIGHT INFUSIONS
     Route: 042
     Dates: start: 2002
  2. SOLU-MEDROL [Suspect]
     Active Substance: METHYLPREDNISOLONE SODIUM SUCCINATE
     Indication: ENDOCRINE OPHTHALMOPATHY
     Dosage: 15MG/KG FOR THE FIRST FOUR INFUSIONS
     Route: 042
     Dates: start: 2002

REACTIONS (1)
  - Liver injury [Fatal]
